FAERS Safety Report 6889761-X (Version None)
Quarter: 2010Q3

REPORT INFORMATION
  Report Type: 
  Country: None (occurrence: None)
  Receive Date: 20100730
  Receipt Date: 20080524
  Transmission Date: 20110219
  Serious: No
  Sender: FDA-Public Use
  Company Number: US-PFIZER INC-2008016863

PATIENT
  Sex: Female
  Weight: 72.57 kg

DRUGS (4)
  1. LIPITOR [Suspect]
     Indication: BLOOD TRIGLYCERIDES INCREASED
     Route: 048
     Dates: start: 20071101
  2. LIPITOR [Suspect]
     Indication: BLOOD CHOLESTEROL INCREASED
  3. EUGYNON [Concomitant]
     Dosage: 1 TABLET
     Route: 048
  4. ACCUTANE [Concomitant]
     Route: 048
     Dates: start: 20071015

REACTIONS (1)
  - MUSCLE SPASMS [None]
